FAERS Safety Report 5689918-X (Version None)
Quarter: 2008Q1

REPORT INFORMATION
  Report Type: 
  Country: None (occurrence: None)
  Receive Date: 20080331
  Receipt Date: 20080331
  Transmission Date: 20080703
  Serious: Yes (Life-Threatening)
  Sender: FDA-Public Use
  Company Number: None

PATIENT
  Age: 52 Year
  Sex: Male
  Weight: 72.5755 kg

DRUGS (4)
  1. GLYCOPYRROLATE [Suspect]
     Dates: start: 20080325, end: 20080325
  2. GLYCOPYRROLATE [Suspect]
  3. NEOSTIGMINE METHYLSULFATE INJ 1 MG/ML, 10 ML BAXTER [Suspect]
     Dates: start: 20080325, end: 20080325
  4. NEOSTIGMINE METHYLSULFATE [Suspect]

REACTIONS (1)
  - CARDIAC ARREST [None]
